FAERS Safety Report 4317322-5 (Version None)
Quarter: 2004Q1

REPORT INFORMATION
  Report Type: 
  Country: None (occurrence: None)
  Receive Date: 20040312
  Receipt Date: 20040302
  Transmission Date: 20041129
  Serious: Yes (Disabling)
  Sender: FDA-Public Use
  Company Number: 2004EU000449

PATIENT
  Age: 54 Year
  Sex: Male

DRUGS (2)
  1. PROGRAF [Suspect]
     Indication: RENAL TRANSPLANT
     Dosage: 2.00 MG, BID, ORAL
     Route: 048
     Dates: start: 20030201
  2. CELLCEPT [Suspect]
     Dosage: 500.00 MG, BID, ORAL
     Route: 048
     Dates: start: 20030201

REACTIONS (1)
  - BONE PAIN [None]
